FAERS Safety Report 5886847-3 (Version None)
Quarter: 2008Q3

REPORT INFORMATION
  Report Type: 
  Country: None (occurrence: None)
  Receive Date: 20080915
  Receipt Date: 20080718
  Transmission Date: 20090109
  Serious: Yes (Hospitalization, Other)
  Sender: FDA-Public Use
  Company Number: 2008EU001453

PATIENT
  Age: 73 Year
  Sex: Male

DRUGS (3)
  1. PROGRAF [Suspect]
     Indication: HEART TRANSPLANT
     Dosage: UNKNOWN/D, ORAL
     Route: 048
     Dates: start: 19990520
  2. SANDIMMUNE [Suspect]
     Indication: HEART TRANSPLANT
     Dosage: UNKNOWN/D, ORAL
     Route: 048
  3. ANTIARRHYTHMICS, CLASS 1 AND III( ) [Suspect]
     Dosage: UNKNOWN/D, UNKNOWN

REACTIONS (3)
  - CONDITION AGGRAVATED [None]
  - POLYNEUROPATHY [None]
  - SKIN CANCER [None]
